FAERS Safety Report 13275041 (Version 1)
Quarter: 2017Q1

REPORT INFORMATION
  Report Type: Spontaneous
  Country: DE (occurrence: DE)
  Receive Date: 20170227
  Receipt Date: 20170227
  Transmission Date: 20170428
  Serious: Yes (Hospitalization, Other)
  Sender: FDA-Public Use
  Company Number: DE-AMGEN-DEUSP2017029799

PATIENT
  Age: 69 Year
  Sex: Female

DRUGS (3)
  1. ENBREL [Suspect]
     Active Substance: ETANERCEPT
     Indication: RHEUMATOID ARTHRITIS
     Dosage: 50 MG, WEEKLY
     Route: 065
     Dates: start: 20150805
  2. MTX [Concomitant]
     Active Substance: METHOTREXATE SODIUM
     Dosage: 7.5 MG, UNK
  3. CORTISONE [Concomitant]
     Active Substance: CORTISONE\HYDROCORTISONE
     Dosage: 4 MG, UNK

REACTIONS (3)
  - Osteoporosis [Not Recovered/Not Resolved]
  - Polyp [Not Recovered/Not Resolved]
  - Spinal fracture [Not Recovered/Not Resolved]
